FAERS Safety Report 7657979-4 (Version None)
Quarter: 2011Q3

REPORT INFORMATION
  Report Type: 
  Country: None (occurrence: None)
  Receive Date: 20110805
  Receipt Date: 20110728
  Transmission Date: 20111222
  Serious: Yes (Other)
  Sender: FDA-Public Use
  Company Number: GB-RB-027367-11

PATIENT
  Age: 37 Year
  Sex: Male

DRUGS (1)
  1. SALICYLIC ACID [Suspect]
     Indication: HYPERKERATOSIS
     Route: 061

REACTIONS (1)
  - SOFT TISSUE NECROSIS [None]
